FAERS Safety Report 7995936-9 (Version None)
Quarter: 2011Q4

REPORT INFORMATION
  Report Type: 
  Country: None (occurrence: None)
  Receive Date: 20111220
  Receipt Date: 20111214
  Transmission Date: 20120403
  Serious: Yes (Hospitalization)
  Sender: FDA-Public Use
  Company Number: BE-ROXANE LABORATORIES, INC.-2011-RO-01808RO

PATIENT
  Age: 42 Year
  Sex: Male

DRUGS (1)
  1. MORPHINE [Suspect]
     Indication: POST LAMINECTOMY SYNDROME
     Route: 037

REACTIONS (2)
  - TWIDDLER'S SYNDROME [None]
  - DRUG WITHDRAWAL SYNDROME [None]
